FAERS Safety Report 9943300 (Version 1)
Quarter: 2014Q1

REPORT INFORMATION
  Report Type: Spontaneous
  Country: US (occurrence: US)
  Receive Date: 20140303
  Receipt Date: 20140303
  Transmission Date: 20141002
  Serious: Yes (Other)
  Sender: FDA-Public Use
  Company Number: US-TEVA-465126USA

PATIENT
  Sex: Female

DRUGS (1)
  1. TRAZODONE [Suspect]

REACTIONS (3)
  - Thrombosis [Unknown]
  - Menstruation irregular [Unknown]
  - Menorrhagia [Unknown]
